FAERS Safety Report 19784535 (Version 1)
Quarter: 2021Q3

REPORT INFORMATION
  Report Type: Spontaneous
  Country: US (occurrence: US)
  Receive Date: 20210903
  Receipt Date: 20210903
  Transmission Date: 20211014
  Serious: Yes (Hospitalization)
  Sender: FDA-Public Use
  Company Number: None

PATIENT

DRUGS (1)
  1. REGEN?COV [Suspect]
     Active Substance: CASIRIVIMAB\IMDEVIMAB
     Indication: COVID-19 TREATMENT

REACTIONS (4)
  - Blood pressure decreased [None]
  - Seizure [None]
  - Loss of consciousness [None]
  - Incontinence [None]

NARRATIVE: CASE EVENT DATE: 20210903
